FAERS Safety Report 9122692 (Version 1)
Quarter: 2013Q1

REPORT INFORMATION
  Report Type: Spontaneous
  Country: JP (occurrence: JP)
  Receive Date: 20130227
  Receipt Date: 20130227
  Transmission Date: 20140127
  Serious: Yes (Other)
  Sender: FDA-Public Use
  Company Number: JP-JNJFOC-20130200543

PATIENT
  Age: 76 Year
  Sex: Male

DRUGS (6)
  1. TRAMCET [Suspect]
     Indication: PAIN
     Dosage: 5 PER 1 MONTH
     Route: 048
     Dates: start: 20121120
  2. TRAMCET [Suspect]
     Indication: PAIN
     Dosage: 4 TABLETS PER DAY
     Route: 048
     Dates: start: 201301
  3. LYRICA [Interacting]
     Indication: PAIN
     Dosage: PER 1 DAY
     Route: 048
  4. LYRICA [Interacting]
     Indication: PAIN
     Dosage: PER 1 DAY
     Route: 048
     Dates: end: 20130117
  5. LYRICA [Interacting]
     Indication: HYPOAESTHESIA
     Dosage: PER 1 DAY
     Route: 048
  6. LYRICA [Interacting]
     Indication: HYPOAESTHESIA
     Dosage: PER 1 DAY
     Route: 048
     Dates: end: 20130117

REACTIONS (3)
  - Confusional state [Recovered/Resolved]
  - Drug interaction [Unknown]
  - Inappropriate schedule of drug administration [Unknown]
